FAERS Safety Report 17958089 (Version 3)
Quarter: 2020Q4

REPORT INFORMATION
  Report Type: Report from Study
  Country: US (occurrence: US)
  Receive Date: 20200629
  Receipt Date: 20201231
  Transmission Date: 20210113
  Serious: Yes (Hospitalization)
  Sender: FDA-Public Use
  Company Number: NVSC2020US176739

PATIENT
  Sex: Female

DRUGS (3)
  1. TREPROSTINIL. [Suspect]
     Active Substance: TREPROSTINIL
     Dosage: 34 NG/KG/MIN
     Route: 042
     Dates: start: 20201105
  2. TREPROSTINIL. [Suspect]
     Active Substance: TREPROSTINIL
     Indication: PULMONARY ARTERIAL HYPERTENSION
     Dosage: 30 NG/KG/MIN
     Route: 042
     Dates: start: 201911
  3. TREPROSTINIL. [Suspect]
     Active Substance: TREPROSTINIL
     Dosage: 50 NG, Q24H (50NG/KG/MIN AT 41 ML 24 HOURS CONTINUOUS)
     Route: 042
     Dates: start: 20200122

REACTIONS (3)
  - Infection [Unknown]
  - Diarrhoea [Unknown]
  - Respiratory failure [Unknown]
